FAERS Safety Report 7730462-3 (Version None)
Quarter: 2011Q3

REPORT INFORMATION
  Report Type: 
  Country: None (occurrence: None)
  Receive Date: 20110901
  Receipt Date: 20110901
  Transmission Date: 20111222
  Serious: Yes (Life-Threatening)
  Sender: FDA-Public Use
  Company Number: None

PATIENT
  Sex: Female
  Weight: 77.1115 kg

DRUGS (1)
  1. OMEPRAZOLE [Suspect]
     Indication: METAPLASIA
     Dosage: 40 MG 2 DAY PILL
     Dates: start: 20050312, end: 20050314

REACTIONS (1)
  - BLOOD PRESSURE INCREASED [None]
